FAERS Safety Report 11718623 (Version 1)
Quarter: 2015Q4

REPORT INFORMATION
  Report Type: Spontaneous
  Country: US (occurrence: US)
  Receive Date: 20151109
  Receipt Date: 20151109
  Transmission Date: 20160304
  Serious: No
  Sender: FDA-Public Use
  Company Number: US-TEVA-606285USA

PATIENT
  Sex: Female
  Weight: 83.54 kg

DRUGS (2)
  1. PROAIR HFA [Suspect]
     Active Substance: ALBUTEROL SULFATE
     Indication: BRONCHITIS
     Dosage: 2 PUFFS BY MOUTH TWICE DAILY IF NEEDED
     Route: 055
     Dates: start: 20150826
  2. SYMBICORT [Concomitant]
     Active Substance: BUDESONIDE\FORMOTEROL FUMARATE DIHYDRATE
     Indication: BRONCHITIS

REACTIONS (5)
  - Lip swelling [Recovered/Resolved]
  - Adverse event [Recovered/Resolved]
  - Muscle tightness [Recovered/Resolved]
  - Mouth swelling [Recovered/Resolved]
  - Oral discomfort [Recovered/Resolved]
